FAERS Safety Report 8848530 (Version 1)
Quarter: 2012Q4

REPORT INFORMATION
  Report Type: 
  Country: US (occurrence: US)
  Receive Date: 20121018
  Receipt Date: 20121018
  Transmission Date: 20130627
  Serious: No
  Sender: FDA-Public Use
  Company Number: US-JNJFOC-20121005108

PATIENT
  Age: 56 None
  Sex: Female
  Weight: 72.58 kg

DRUGS (9)
  1. SANDOZ FENTANYL TRANSDERMAL SYSTEM [Suspect]
     Indication: BACK PAIN
     Route: 062
     Dates: start: 201209
  2. OXYCODONE [Concomitant]
     Indication: BREAKTHROUGH PAIN
     Route: 048
     Dates: start: 201204
  3. LEVOXYL [Concomitant]
     Indication: THYROID DISORDER
     Route: 048
  4. PRISTIQ [Concomitant]
     Indication: BIPOLAR DISORDER
     Route: 065
     Dates: end: 201210
  5. TRAZODONE [Concomitant]
     Indication: INSOMNIA
     Route: 048
     Dates: end: 201209
  6. SEROQUEL [Concomitant]
     Route: 048
     Dates: start: 201209
  7. SEROQUEL [Concomitant]
     Route: 048
     Dates: end: 201209
  8. BUTALBITAL [Concomitant]
     Indication: MIGRAINE
     Route: 048
  9. VENLAFAXINE [Concomitant]
     Indication: BIPOLAR DISORDER
     Route: 048
     Dates: start: 201210

REACTIONS (5)
  - Wrong technique in drug usage process [Not Recovered/Not Resolved]
  - Drug ineffective [Not Recovered/Not Resolved]
  - Somnolence [Recovering/Resolving]
  - Dizziness [Not Recovered/Not Resolved]
  - Product quality issue [Unknown]
